FAERS Safety Report 26180440 (Version 1)
Quarter: 2025Q4

REPORT INFORMATION
  Report Type: Spontaneous
  Country: EU (occurrence: EU)
  Receive Date: 20251219
  Receipt Date: 20251219
  Transmission Date: 20260117
  Serious: Yes (Hospitalization, Congenital Anomaly, Other)
  Sender: UNITED THERAPEUTICS
  Company Number: None

PATIENT
  Age: 1 Day
  Sex: Female
  Weight: 1.35 kg

DRUGS (19)
  1. TREPROSTINIL SODIUM [Suspect]
     Active Substance: TREPROSTINIL SODIUM
     Indication: Product used for unknown indication
     Dosage: UNK, CONTINUING
  2. APIXABAN [Suspect]
     Active Substance: APIXABAN
     Indication: Product used for unknown indication
  3. AZATHIOPRINE [Suspect]
     Active Substance: AZATHIOPRINE
     Indication: Product used for unknown indication
     Dosage: 50 MG, QD [7.5-33 GESTATIONAL WEEK]
  4. HYDROXYCHLOROQUINE [Suspect]
     Active Substance: HYDROXYCHLOROQUINE
     Indication: Systemic lupus erythematosus
     Dosage: 200 MG, QD [9.3-33 GESTATIONAL WEEK]
  5. HYDROXYCHLOROQUINE [Suspect]
     Active Substance: HYDROXYCHLOROQUINE
     Dosage: UNK
  6. MACITENTAN [Suspect]
     Active Substance: MACITENTAN
     Indication: Pulmonary arterial hypertension
     Dosage: 10 MG, QD [EXPOSURE AT 3 GESTATIONAL WEEK]
  7. MACITENTAN [Suspect]
     Active Substance: MACITENTAN
     Dosage: 10 MG, QD [0-5.2 GESTATIONAL WEEK]
  8. PREDNISOLONE [Suspect]
     Active Substance: PREDNISOLONE
     Indication: Systemic lupus erythematosus
     Dosage: 5 MG, QD [7.5-33 GESTATIONAL WEEK]
  9. PREDNISOLONE [Suspect]
     Active Substance: PREDNISOLONE
     Dosage: UNK
  10. SILDENAFIL [Suspect]
     Active Substance: SILDENAFIL
     Indication: Pulmonary arterial hypertension
     Dosage: 20 MG, TID
  11. SILDENAFIL [Suspect]
     Active Substance: SILDENAFIL
     Dosage: 20 MG, TID
  12. SILDENAFIL [Suspect]
     Active Substance: SILDENAFIL
     Dosage: 60 MG, QD
  13. SILDENAFIL [Suspect]
     Active Substance: SILDENAFIL
     Dosage: 20 MG, QD [7.5-33 GESTATIONAL WEEK]
  14. TINZAPARIN [Suspect]
     Active Substance: TINZAPARIN
     Indication: Pulmonary arterial hypertension
     Dosage: UNK
  15. TINZAPARIN [Suspect]
     Active Substance: TINZAPARIN
     Dosage: 20000 [IE/D] [7.5-33 GESTATIONAL WEEK]
  16. ILOPROST TROMETHAMINE [Suspect]
     Active Substance: ILOPROST TROMETHAMINE
     Indication: Product used for unknown indication
     Dosage: UNK [1 TRIMESTER]
  17. Calcium phosphate dibasic, Ferrous succinate, Magnesium hydroxide [Concomitant]
     Indication: Prophylaxis of neural tube defect
     Dosage: [5.2-9.3 GESTATIONAL WEEK]
  18. BETAMETHASONE [Concomitant]
     Active Substance: BETAMETHASONE
     Indication: Maternal therapy to enhance foetal lung maturity
     Dosage: [29.4-29.5 GESTATIONAL WEEK]
  19. ATOSIBAN [Concomitant]
     Active Substance: ATOSIBAN
     Indication: Tocolysis
     Dosage: [33 GESTATIONAL WEEK]

REACTIONS (13)
  - Chondrodysplasia punctata [Unknown]
  - Congenital musculoskeletal disorder [Unknown]
  - Skeletal dysplasia [Not Recovered/Not Resolved]
  - Multiple epiphyseal dysplasia [Not Recovered/Not Resolved]
  - Brachydactyly [Not Recovered/Not Resolved]
  - Neonatal respiratory distress syndrome [Recovered/Resolved]
  - Bradycardia [Recovered/Resolved]
  - Cyanosis [Recovered/Resolved]
  - Hypotonia [Recovered/Resolved]
  - Posture abnormal [Unknown]
  - Premature baby [Recovered/Resolved]
  - Foetal growth restriction [Unknown]
  - Foetal exposure during pregnancy [Recovered/Resolved]
